FAERS Safety Report 6165690-4 (Version None)
Quarter: 2009Q2

REPORT INFORMATION
  Report Type: 
  Country: None (occurrence: None)
  Receive Date: 20090423
  Receipt Date: 20090414
  Transmission Date: 20091009
  Serious: Yes (Life-Threatening, Hospitalization, Other)
  Sender: FDA-Public Use
  Company Number: DE-AMGEN-QUU342909

PATIENT
  Sex: Female
  Weight: 72 kg

DRUGS (1)
  1. NEULASTA [Suspect]
     Indication: PRE-EXISTING DISEASE
     Route: 058
     Dates: start: 20090331, end: 20090331

REACTIONS (8)
  - CHILLS [None]
  - HAEMOLYSIS [None]
  - HAEMORRHAGE [None]
  - LUNG DISORDER [None]
  - PERIORBITAL HAEMATOMA [None]
  - PYREXIA [None]
  - THROMBOCYTOPENIA [None]
  - THROMBOCYTOPENIC PURPURA [None]
